FAERS Safety Report 6566163-7 (Version None)
Quarter: 2010Q1

REPORT INFORMATION
  Report Type: 
  Country: None (occurrence: None)
  Receive Date: 20100202
  Receipt Date: 20100125
  Transmission Date: 20100710
  Serious: Yes (Other)
  Sender: FDA-Public Use
  Company Number: US-ASTRAZENECA-2007UW09592

PATIENT
  Age: 46 Year
  Sex: Male
  Weight: 124.7 kg

DRUGS (25)
  1. SEROQUEL [Suspect]
     Indication: BIPOLAR DISORDER
     Route: 048
     Dates: start: 20021201, end: 20030601
  2. SEROQUEL [Suspect]
     Indication: ANXIETY
     Route: 048
     Dates: start: 20021201, end: 20030601
  3. SEROQUEL [Suspect]
     Indication: SLEEP DISORDER
     Route: 048
     Dates: start: 20021201, end: 20030601
  4. SEROQUEL [Suspect]
     Dosage: 25-200 MG
     Route: 048
     Dates: start: 20030129
  5. SEROQUEL [Suspect]
     Dosage: 25-200 MG
     Route: 048
     Dates: start: 20030129
  6. SEROQUEL [Suspect]
     Dosage: 25-200 MG
     Route: 048
     Dates: start: 20030129
  7. SEROQUEL [Suspect]
     Route: 048
     Dates: start: 20060417, end: 20070418
  8. SEROQUEL [Suspect]
     Route: 048
     Dates: start: 20060417, end: 20070418
  9. SEROQUEL [Suspect]
     Route: 048
     Dates: start: 20060417, end: 20070418
  10. RISPERDAL [Suspect]
     Indication: BIPOLAR DISORDER
     Route: 065
     Dates: start: 19980101, end: 19980101
  11. ZYPREXA [Suspect]
     Indication: BIPOLAR DISORDER
     Route: 065
     Dates: start: 20010101, end: 20021104
  12. TEMAZEPAM [Concomitant]
     Route: 048
  13. CLONAZEPAM [Concomitant]
     Dosage: 0.5-1 MG
     Route: 048
  14. NEURONTIN [Concomitant]
     Dosage: 300-1200 MG
     Route: 048
  15. RHINOCORT [Concomitant]
     Route: 045
  16. NORTRIPTYLINE HYDROCHLORIDE [Concomitant]
  17. ATENOLOL [Concomitant]
     Route: 048
  18. LIPITOR [Concomitant]
     Route: 048
  19. ZESTRIL [Concomitant]
     Route: 048
  20. PAROXETINE HCL [Concomitant]
     Indication: DEPRESSION
     Dosage: 40 MG ONE AND HALF ONCE A DAY
     Route: 048
     Dates: start: 20080219
  21. SIMVASTATIN [Concomitant]
     Indication: BLOOD CHOLESTEROL INCREASED
     Dosage: 40 MG ONE-HALF TABLET ONCE A DAY
     Route: 048
     Dates: start: 20080219
  22. VARDENAFIL [Concomitant]
     Indication: ERECTILE DYSFUNCTION
     Dosage: 20 MG ONE TABLET BY MOUTH ONCE A DAY
     Route: 048
     Dates: start: 20080219
  23. OMEPRAZOLE [Concomitant]
     Indication: HYPERCHLORHYDRIA
     Dosage: 20 MG CAP TAKE ONE CAPSULE BY MOUTH ONCE A DAY 30 MINUTES BEFORE THE LARGEST MEAL
     Dates: start: 20080219
  24. OMEPRAZOLE [Concomitant]
     Indication: GASTROOESOPHAGEAL REFLUX DISEASE
     Dosage: 20 MG CAP TAKE ONE CAPSULE BY MOUTH ONCE A DAY 30 MINUTES BEFORE THE LARGEST MEAL
     Dates: start: 20080219
  25. OMEPRAZOLE [Concomitant]
     Indication: ULCER
     Dosage: 20 MG CAP TAKE ONE CAPSULE BY MOUTH ONCE A DAY 30 MINUTES BEFORE THE LARGEST MEAL
     Dates: start: 20080219

REACTIONS (5)
  - DIABETES MELLITUS [None]
  - DIABETES MELLITUS INADEQUATE CONTROL [None]
  - DIABETIC KETOACIDOSIS [None]
  - DIABETIC NEUROPATHY [None]
  - TYPE 2 DIABETES MELLITUS [None]
